FAERS Safety Report 9419960 (Version 1)
Quarter: 2013Q3

REPORT INFORMATION
  Report Type: Spontaneous
  Country: US (occurrence: US)
  Receive Date: 20130725
  Receipt Date: 20130725
  Transmission Date: 20140515
  Serious: Yes (Other)
  Sender: FDA-Public Use
  Company Number: US-JNJFOC-20130613818

PATIENT
  Age: 62 Year
  Sex: Male
  Weight: 136.99 kg

DRUGS (5)
  1. INVOKANA [Suspect]
     Indication: DIABETES MELLITUS
     Route: 048
     Dates: start: 20130620
  2. INVOKANA [Suspect]
     Indication: DIABETES MELLITUS
     Route: 048
     Dates: start: 20130612, end: 20130620
  3. METFORMIN [Concomitant]
  4. ACTOS [Concomitant]
  5. GLUCOTROL [Concomitant]

REACTIONS (2)
  - Blood glucose increased [Recovered/Resolved]
  - Drug ineffective [Unknown]
